FAERS Safety Report 6189296-6 (Version None)
Quarter: 2009Q2

REPORT INFORMATION
  Report Type: 
  Country: None (occurrence: None)
  Receive Date: 20090512
  Receipt Date: 20090427
  Transmission Date: 20091009
  Serious: Yes (Death, Life-Threatening, Hospitalization, Disabling)
  Sender: FDA-Public Use
  Company Number: 2009US001435

PATIENT
  Age: 70 Year
  Sex: Male

DRUGS (1)
  1. VESICARE [Suspect]
     Indication: URINARY INCONTINENCE
     Dosage: 5 MG,  ORAL
     Route: 048
     Dates: start: 20090401

REACTIONS (2)
  - GASTROINTESTINAL OBSTRUCTION [None]
  - UNEVALUABLE EVENT [None]
